FAERS Safety Report 25493780 (Version 1)
Quarter: 2025Q2

REPORT INFORMATION
  Report Type: Spontaneous
  Country: US (occurrence: None)
  Receive Date: 20250627
  Receipt Date: 20250627
  Transmission Date: 20250716
  Serious: No
  Sender: FDA-CTU
  Company Number: None

PATIENT
  Age: 65 Year
  Sex: Female
  Weight: 45.9 kg

DRUGS (7)
  1. PROLIA [Suspect]
     Active Substance: DENOSUMAB
     Indication: Osteoporosis prophylaxis
     Route: 058
     Dates: start: 20240508
  2. LEVOTHYROXINE [Concomitant]
     Active Substance: LEVOTHYROXINE
  3. LIOTHYRONINE [Concomitant]
     Active Substance: LIOTHYRONINE
  4. ROSUVASTATIN [Concomitant]
     Active Substance: ROSUVASTATIN
  5. VITAMIN D [Concomitant]
     Active Substance: VITAMIN D NOS
  6. CALCIUM [Concomitant]
     Active Substance: CALCIUM
  7. CORTISOL [Concomitant]
     Active Substance: HYDROCORTISONE

REACTIONS (8)
  - Neck pain [None]
  - Headache [None]
  - Vomiting [None]
  - Illness [None]
  - Nausea [None]
  - Dizziness [None]
  - Taste disorder [None]
  - Dysgeusia [None]

NARRATIVE: CASE EVENT DATE: 20250618
